FAERS Safety Report 10761767 (Version 3)
Quarter: 2015Q1

REPORT INFORMATION
  Report Type: Report from Study
  Country: JP (occurrence: JP)
  Receive Date: 20150204
  Receipt Date: 20150227
  Transmission Date: 20150721
  Serious: No
  Sender: FDA-Public Use
  Company Number: JP-JNJFOC-20150200503

PATIENT
  Age: 75 Year
  Sex: Male

DRUGS (15)
  1. PREZISTA [Suspect]
     Active Substance: DARUNAVIR ETHANOLATE
     Indication: HIV INFECTION
     Route: 048
     Dates: start: 20111109
  2. EPZICOM [Suspect]
     Active Substance: ABACAVIR SULFATE\LAMIVUDINE
     Indication: HIV INFECTION
     Route: 048
     Dates: start: 20120918
  3. CLARITH [Concomitant]
     Active Substance: CLARITHROMYCIN
     Route: 048
  4. BAYASPIRIN [Concomitant]
     Active Substance: ASPIRIN
     Indication: ATRIAL FIBRILLATION
     Route: 048
     Dates: start: 2013, end: 201402
  5. KLARICID [Concomitant]
     Active Substance: CLARITHROMYCIN
     Route: 048
  6. MYCOBUTIN [Concomitant]
     Active Substance: RIFABUTIN
     Route: 048
  7. TRUVADA [Concomitant]
     Active Substance: EMTRICITABINE\TENOFOVIR DISOPROXIL FUMARATE
     Indication: HIV INFECTION
     Route: 048
     Dates: start: 20111109, end: 20120917
  8. VALIXA [Concomitant]
     Active Substance: VALGANCICLOVIR
     Route: 048
  9. ZITHROMAC [Concomitant]
     Active Substance: AZITHROMYCIN DIHYDRATE
     Route: 065
  10. SAMTIREL [Concomitant]
     Active Substance: ATOVAQUONE
     Route: 048
  11. PRAZAXA [Concomitant]
     Active Substance: DABIGATRAN ETEXILATE MESYLATE
     Indication: PROPHYLAXIS
     Route: 048
     Dates: start: 201403
  12. NORVIR [Suspect]
     Active Substance: RITONAVIR
     Indication: HIV INFECTION
     Route: 048
     Dates: start: 20111109
  13. PAROMOMYCIN SULFATE. [Concomitant]
     Active Substance: PAROMOMYCIN SULFATE
     Indication: AMOEBIC DYSENTERY
     Route: 048
     Dates: start: 20131001, end: 20131010
  14. TENORMIN [Concomitant]
     Active Substance: ATENOLOL
     Indication: PALPITATIONS
     Route: 048
     Dates: start: 2013, end: 201402
  15. GANCICLOVIR. [Concomitant]
     Active Substance: GANCICLOVIR
     Route: 041

REACTIONS (1)
  - Blood cholesterol increased [Recovering/Resolving]

NARRATIVE: CASE EVENT DATE: 20130402
